FAERS Safety Report 6917323-4 (Version None)
Quarter: 2010Q3

REPORT INFORMATION
  Report Type: 
  Country: None (occurrence: None)
  Receive Date: 20100721
  Receipt Date: 20100122
  Transmission Date: 20110219
  Serious: No
  Sender: FDA-Public Use
  Company Number: 2010AL000104

PATIENT
  Sex: Female

DRUGS (1)
  1. FOLOTYN [Suspect]

REACTIONS (2)
  - CONJUNCTIVITIS [None]
  - MUCOSAL INFLAMMATION [None]
